FAERS Safety Report 9367930 (Version 1)
Quarter: 2013Q2

REPORT INFORMATION
  Report Type: Spontaneous
  Country: US (occurrence: US)
  Receive Date: 20130625
  Receipt Date: 20130625
  Transmission Date: 20140414
  Serious: No
  Sender: FDA-Public Use
  Company Number: US-ASTELLAS-2012US010698

PATIENT
  Age: 72 Year
  Sex: Female

DRUGS (2)
  1. VESICARE [Suspect]
     Indication: STRESS URINARY INCONTINENCE
     Dosage: 10 MG, UID/QD
     Route: 048
  2. WELLBUTRIN [Suspect]
     Indication: DEPRESSION
     Dosage: AT NIGHT
     Route: 065

REACTIONS (1)
  - Insomnia [Unknown]
